FAERS Safety Report 15029693 (Version 2)
Quarter: 2018Q3

REPORT INFORMATION
  Report Type: Report from Study
  Country: US (occurrence: US)
  Receive Date: 20180619
  Receipt Date: 20180709
  Transmission Date: 20181010
  Serious: Yes (Hospitalization)
  Sender: FDA-Public Use
  Company Number: US-JNJFOC-20180421249

PATIENT
  Age: 80 Year
  Sex: Male

DRUGS (15)
  1. IMBRUVICA [Suspect]
     Active Substance: IBRUTINIB
     Indication: CHRONIC LYMPHOCYTIC LEUKAEMIA
     Route: 048
     Dates: start: 20180330
  2. IMBRUVICA [Suspect]
     Active Substance: IBRUTINIB
     Indication: CHRONIC LYMPHOCYTIC LEUKAEMIA
     Route: 048
     Dates: start: 20180405, end: 20180606
  3. ASCORBIC ACID. [Concomitant]
     Active Substance: ASCORBIC ACID
  4. NIACIN. [Concomitant]
     Active Substance: NIACIN
  5. METOPROLOL. [Concomitant]
     Active Substance: METOPROLOL
  6. CARAFATE [Concomitant]
     Active Substance: SUCRALFATE
  7. RANEXA [Concomitant]
     Active Substance: RANOLAZINE
  8. PLAVIX [Concomitant]
     Active Substance: CLOPIDOGREL BISULFATE
  9. FUROSEMIDE. [Concomitant]
     Active Substance: FUROSEMIDE
  10. FISH OIL [Concomitant]
     Active Substance: FISH OIL
  11. CRESTOR [Concomitant]
     Active Substance: ROSUVASTATIN CALCIUM
  12. TOCOPHEROL [Concomitant]
     Active Substance: TOCOPHEROL
  13. FERROUS SULFATE. [Concomitant]
     Active Substance: FERROUS SULFATE
  14. ALLOPURINOL. [Concomitant]
     Active Substance: ALLOPURINOL
  15. VITAMIN D [Concomitant]
     Active Substance: CHOLECALCIFEROL

REACTIONS (2)
  - Oesophageal ulcer haemorrhage [Recovering/Resolving]
  - Decreased appetite [Unknown]

NARRATIVE: CASE EVENT DATE: 2018
